FAERS Safety Report 14535435 (Version 1)
Quarter: 2018Q1

REPORT INFORMATION
  Report Type: Spontaneous
  Country: US (occurrence: US)
  Receive Date: 20180214
  Receipt Date: 20180214
  Transmission Date: 20180509
  Serious: No
  Sender: FDA-Public Use
  Company Number: None

PATIENT
  Age: 25 Year
  Sex: Female
  Weight: 65.25 kg

DRUGS (5)
  1. DULOXETINE. [Suspect]
     Active Substance: DULOXETINE
     Indication: BIPOLAR DISORDER
     Dates: start: 20180209, end: 20180213
  2. LITHIUM. [Concomitant]
     Active Substance: LITHIUM
  3. QUETIAPINE. [Concomitant]
     Active Substance: QUETIAPINE
  4. TRAMADOL. [Concomitant]
     Active Substance: TRAMADOL
  5. AMOXICILLIN. [Concomitant]
     Active Substance: AMOXICILLIN

REACTIONS (2)
  - Therapy cessation [None]
  - Rash [None]

NARRATIVE: CASE EVENT DATE: 20180213
